FAERS Safety Report 26037280 (Version 1)
Quarter: 2025Q4

REPORT INFORMATION
  Report Type: Spontaneous
  Country: EU (occurrence: EU)
  Receive Date: 20251112
  Receipt Date: 20251112
  Transmission Date: 20260118
  Serious: Yes (Other)
  Sender: NOVO NORDISK
  Company Number: EU-NOVOPROD-1556534

PATIENT
  Age: 64 Year
  Sex: Female

DRUGS (1)
  1. SEMAGLUTIDE [Suspect]
     Active Substance: SEMAGLUTIDE
     Indication: Type 2 diabetes mellitus
     Dosage: UNK
     Dates: start: 2024

REACTIONS (3)
  - Optic ischaemic neuropathy [Recovered/Resolved with Sequelae]
  - Vasculitis [Recovered/Resolved with Sequelae]
  - Hypotension [Recovered/Resolved]

NARRATIVE: CASE EVENT DATE: 20240101
